FAERS Safety Report 21103474 (Version 1)
Quarter: 2022Q3

REPORT INFORMATION
  Report Type: Report from Study
  Country: DE (occurrence: DE)
  Receive Date: 20220720
  Receipt Date: 20220720
  Transmission Date: 20221026
  Serious: Yes (Hospitalization, Other)
  Sender: FDA-Public Use
  Company Number: DE-CELGENE-DEU-20191101756

PATIENT
  Age: 79 Year
  Sex: Female

DRUGS (6)
  1. DEXAMETHASONE [Suspect]
     Active Substance: DEXAMETHASONE
     Indication: Plasma cell myeloma
     Dosage: UNIT DOSE :  20MG, DURATION :21 DAYS
     Route: 065
     Dates: start: 20190913, end: 20191004
  2. DEXAMETHASONE [Suspect]
     Active Substance: DEXAMETHASONE
     Dosage: 8 MILLIGRAM,  DURATION :5  DAYS, FREQUENCY TIME : 1 WEEK
     Route: 065
     Dates: start: 20190823, end: 20190828
  3. DEXAMETHASONE [Suspect]
     Active Substance: DEXAMETHASONE
     Dosage: UNIT DOSE :  20MG, DURATION :21 DAYS
     Route: 065
     Dates: start: 20170921, end: 20171012
  4. POMALIDOMIDE [Suspect]
     Active Substance: POMALIDOMIDE
     Indication: Plasma cell myeloma
     Dosage: UNIT DOSE : 4MG,  DURATION :20 DAYS
     Route: 065
     Dates: start: 20170921, end: 20171011
  5. POMALIDOMIDE [Suspect]
     Active Substance: POMALIDOMIDE
     Dosage: 4 MILLIGRAM, UNIT DOSE :  84 MG, FREQUENCY TIME : 28 DAYS,  DURATION : 4 DAYS
     Route: 065
     Dates: start: 20190823, end: 20190827
  6. POMALIDOMIDE [Suspect]
     Active Substance: POMALIDOMIDE
     Dosage: UNIT DOSE : 4MG,  DURATION : 20 DAYS
     Route: 065
     Dates: start: 20190913, end: 20191003

REACTIONS (2)
  - Herpes zoster [Recovered/Resolved]
  - Post herpetic neuralgia [Recovering/Resolving]

NARRATIVE: CASE EVENT DATE: 20190824
